FAERS Safety Report 16560639 (Version 1)
Quarter: 2019Q3

REPORT INFORMATION
  Report Type: Other
  Country: DE (occurrence: DE)
  Receive Date: 20190711
  Receipt Date: 20190711
  Transmission Date: 20191004
  Serious: Yes (Other)
  Sender: FDA-Public Use
  Company Number: DE-AGG-06-2018-0837

PATIENT
  Age: 80 Year
  Sex: Female

DRUGS (6)
  1. AGGRASTAT [Suspect]
     Active Substance: TIROFIBAN HYDROCHLORIDE
     Indication: ANTIPLATELET THERAPY
     Dosage: LOADING DOSE 0.4 MCG/KG/MIN FOR 30 MIN
     Route: 042
  2. ASA [Concomitant]
     Active Substance: ASPIRIN
     Indication: ANTIPLATELET THERAPY
  3. AGGRASTAT [Suspect]
     Active Substance: TIROFIBAN HYDROCHLORIDE
     Indication: ANTIPLATELET THERAPY
     Dosage: MAINTENANCE DOSE OF 0.1 MCG/KG/MIN IV FOR AT LEAST 12H
     Route: 042
  4. RT-PA [Concomitant]
     Active Substance: ALTEPLASE
     Indication: ANTICOAGULANT THERAPY
     Route: 042
  5. HEPARIN [Concomitant]
     Active Substance: HEPARIN SODIUM
     Indication: ANTICOAGULANT THERAPY
  6. CLOPIDOGREL [Concomitant]
     Active Substance: CLOPIDOGREL BISULFATE
     Indication: ANTIPLATELET THERAPY

REACTIONS (1)
  - Haemorrhage intracranial [Unknown]
